FAERS Safety Report 8893836 (Version 2)
Quarter: 2012Q4

REPORT INFORMATION
  Report Type: 
  Country: US (occurrence: US)
  Receive Date: 20121108
  Receipt Date: 20121213
  Transmission Date: 20130627
  Serious: No
  Sender: FDA-Public Use
  Company Number: US-PFIZER INC-2012275297

PATIENT
  Sex: Male

DRUGS (1)
  1. PRAZOSIN HCL [Suspect]
     Indication: PULMONARY ARTERIAL HYPERTENSION
     Dosage: 2 mg, 2x/day (daily)

REACTIONS (2)
  - Vasodilatation [Unknown]
  - Drug ineffective [Unknown]
